FAERS Safety Report 25716401 (Version 1)
Quarter: 2025Q3

REPORT INFORMATION
  Report Type: Report from Study
  Country: BR (occurrence: BR)
  Receive Date: 20250822
  Receipt Date: 20250822
  Transmission Date: 20251020
  Serious: Yes (Other)
  Sender: NOVARTIS
  Company Number: BR-002147023-NVSC2024BR079535

PATIENT
  Age: 55 Year
  Sex: Female

DRUGS (3)
  1. KISQALI [Suspect]
     Active Substance: RIBOCICLIB SUCCINATE
     Indication: Product used for unknown indication
     Route: 065
  2. KISQALI [Suspect]
     Active Substance: RIBOCICLIB SUCCINATE
     Dosage: 3 DOSAGE FORM, QD
     Route: 065
  3. KISQALI [Suspect]
     Active Substance: RIBOCICLIB SUCCINATE
     Route: 065

REACTIONS (13)
  - White blood cell count decreased [Recovered/Resolved]
  - Decreased immune responsiveness [Recovered/Resolved]
  - Dizziness [Recovered/Resolved]
  - Viral infection [Recovered/Resolved]
  - Asthenia [Recovered/Resolved]
  - Influenza [Recovered/Resolved]
  - Decreased immune responsiveness [Recovered/Resolved]
  - Cough [Recovered/Resolved]
  - Eating disorder [Recovered/Resolved]
  - Malaise [Recovered/Resolved]
  - White blood cell count increased [Unknown]
  - Poor quality sleep [Recovered/Resolved]
  - Anxiety [Unknown]

NARRATIVE: CASE EVENT DATE: 20240401
